FAERS Safety Report 21140262 (Version 5)
Quarter: 2022Q4

REPORT INFORMATION
  Report Type: Spontaneous
  Country: CA (occurrence: CA)
  Receive Date: 20220728
  Receipt Date: 20221205
  Transmission Date: 20230113
  Serious: Yes (Other)
  Sender: FDA-Public Use
  Company Number: CA-CELLTRION INC.-2022CA010263

PATIENT

DRUGS (5)
  1. INFLECTRA [Suspect]
     Active Substance: INFLIXIMAB-DYYB
     Indication: Rheumatoid arthritis
     Dosage: 5 MG/KG(290MG), AT WEEK 0, 2 AND 6 THEN Q 6 WEEKS
     Route: 042
     Dates: start: 20220604
  2. INFLECTRA [Suspect]
     Active Substance: INFLIXIMAB-DYYB
     Dosage: 5 MG/KG, Q 0, 2 AND 6 THEN Q 6 WEEKS
     Route: 042
     Dates: start: 20220604, end: 20221013
  3. INFLECTRA [Suspect]
     Active Substance: INFLIXIMAB-DYYB
     Dosage: 5 MG/KG, AT WEEK 0, 2 AND 6 THEN Q 6 WEEKS
     Route: 042
     Dates: start: 20220618
  4. INFLECTRA [Suspect]
     Active Substance: INFLIXIMAB-DYYB
     Dosage: 270 MG (SUPPOSED TO RECEIVE A DOSE OF 5MG/KG AT WEEK 0, 2 AND 6 THEN Q 6 WEEKS)
     Route: 042
     Dates: start: 20220716
  5. INFLECTRA [Suspect]
     Active Substance: INFLIXIMAB-DYYB
     Dosage: 5 MG/KG AT WEEK 0, 2 AND 6 THEN Q 6 WEEKS
     Route: 042
     Dates: start: 20221013

REACTIONS (6)
  - Rheumatoid arthritis [Not Recovered/Not Resolved]
  - Off label use [Unknown]
  - Nausea [Recovered/Resolved]
  - Pain [Not Recovered/Not Resolved]
  - Emotional distress [Unknown]
  - Nausea [Unknown]

NARRATIVE: CASE EVENT DATE: 20220101
